FAERS Safety Report 13089047 (Version 1)
Quarter: 2017Q1

REPORT INFORMATION
  Report Type: Spontaneous
  Country: US (occurrence: US)
  Receive Date: 20170104
  Receipt Date: 20170104
  Transmission Date: 20170428
  Serious: Yes (Life-Threatening)
  Sender: FDA-Public Use
  Company Number: None

PATIENT
  Age: 57 Year
  Sex: Male
  Weight: 72 kg

DRUGS (8)
  1. ATORVASTATIN 40MG TABLET, 40 MG [Suspect]
     Active Substance: ATORVASTATIN
     Indication: MYOCARDIAL INFARCTION
     Dosage: ?          QUANTITY:30 TABLET(S);?
     Route: 048
     Dates: start: 20140825, end: 20160920
  2. OMEGA 3 [Concomitant]
     Active Substance: OMEGA-3 FATTY ACIDS
  3. IRON [Concomitant]
     Active Substance: IRON
  4. COQ10 [Concomitant]
     Active Substance: UBIDECARENONE
  5. VATAMIN C [Concomitant]
  6. ASPIRIN. [Concomitant]
     Active Substance: ASPIRIN
  7. VATAMIN B COMPLEX [Concomitant]
  8. CARVEDILOL. [Concomitant]
     Active Substance: CARVEDILOL

REACTIONS (10)
  - Myalgia [None]
  - Pain [None]
  - Dyspnoea [None]
  - Movement disorder [None]
  - Neck pain [None]
  - Feeling abnormal [None]
  - Musculoskeletal stiffness [None]
  - Eye pain [None]
  - Arthralgia [None]
  - Muscular weakness [None]

NARRATIVE: CASE EVENT DATE: 20160901
